FAERS Safety Report 9187870 (Version 1)
Quarter: 2013Q1

REPORT INFORMATION
  Report Type: Spontaneous
  Country: US (occurrence: US)
  Receive Date: 20130325
  Receipt Date: 20130325
  Transmission Date: 20140127
  Serious: No
  Sender: FDA-Public Use
  Company Number: US-MYLANLABS-2012S1014571

PATIENT
  Age: 61 Year
  Sex: Female
  Weight: 94.35 kg

DRUGS (6)
  1. FENTANYL TRANSDERMAL SYSTEM [Suspect]
     Indication: BACK PAIN
     Dosage: CHANGED Q72H
     Route: 062
     Dates: start: 20120709, end: 20120711
  2. TENORMIN [Concomitant]
     Indication: BLOOD PRESSURE
     Route: 048
  3. LOTREL [Concomitant]
     Indication: BLOOD PRESSURE
     Route: 048
  4. CRESTOR [Concomitant]
     Indication: BLOOD TRIGLYCERIDES
     Route: 048
  5. TRICOR [Concomitant]
     Indication: BLOOD TRIGLYCERIDES
     Route: 048
  6. GLIPIZIDE [Concomitant]
     Indication: DIABETES MELLITUS
     Route: 048

REACTIONS (4)
  - Drug withdrawal syndrome [Not Recovered/Not Resolved]
  - Vision blurred [Recovered/Resolved]
  - Dizziness [Recovered/Resolved]
  - Nausea [Recovered/Resolved]
